FAERS Safety Report 4953982-3 (Version None)
Quarter: 2006Q1

REPORT INFORMATION
  Report Type: 
  Country: None (occurrence: None)
  Receive Date: 20060321
  Receipt Date: 20060316
  Transmission Date: 20060701
  Serious: No
  Sender: FDA-Public Use
  Company Number: STA-AE-06-015

PATIENT
  Age: 77 Year
  Sex: Male

DRUGS (2)
  1. ATENOLOL [Suspect]
     Indication: HYPERTENSION
  2. NIFEDIPINE [Suspect]
     Indication: HYPERTENSION

REACTIONS (11)
  - APHASIA [None]
  - ASTHENIA [None]
  - CARDIOGENIC SHOCK [None]
  - CREPITATIONS [None]
  - HYPOGLYCAEMIA [None]
  - HYPOTENSION [None]
  - JUGULAR VEIN DISTENSION [None]
  - MULTIPLE DRUG OVERDOSE [None]
  - NODAL ARRHYTHMIA [None]
  - PULMONARY CONGESTION [None]
  - PULMONARY OEDEMA [None]
